FAERS Safety Report 17528345 (Version 2)
Quarter: 2020Q2

REPORT INFORMATION
  Report Type: Report from Study
  Country: AU (occurrence: AU)
  Receive Date: 20200311
  Receipt Date: 20200629
  Transmission Date: 20200713
  Serious: No
  Sender: FDA-Public Use
  Company Number: AU-TOLMAR, INC.-20AU019869

PATIENT
  Sex: Male

DRUGS (1)
  1. ELIGARD [Suspect]
     Active Substance: LEUPROLIDE ACETATE
     Indication: PROSTATE CANCER
     Dosage: 7.5 MG, Q 1 MONTH
     Route: 058
     Dates: start: 20191206

REACTIONS (6)
  - Fatigue [Unknown]
  - Flat affect [Unknown]
  - Decreased appetite [Unknown]
  - Gynaecomastia [Unknown]
  - Insomnia [Unknown]
  - Depressed mood [Unknown]
